FAERS Safety Report 10646021 (Version 1)
Quarter: 2014Q4

REPORT INFORMATION
  Report Type: Spontaneous
  Country: US (occurrence: None)
  Receive Date: 20141203
  Receipt Date: 20141203
  Transmission Date: 20150529
  Serious: Yes (Other)
  Sender: FDA-Public Use
  Company Number: 1318800

PATIENT
  Age: 88 Year
  Sex: Male

DRUGS (1)
  1. HERCEPTIN [Suspect]
     Active Substance: TRASTUZUMAB
     Indication: GASTRIC ULCER
     Dosage: 1 IN 3 WK,?(NOT OTHERWISE SPECIFIED)
     Route: 042
     Dates: start: 2012

REACTIONS (3)
  - Hypoaesthesia [None]
  - Paraesthesia [None]
  - Thrombosis [None]

NARRATIVE: CASE EVENT DATE: 201311
